FAERS Safety Report 4558053-6 (Version None)
Quarter: 2005Q1

REPORT INFORMATION
  Report Type: 
  Country: None (occurrence: None)
  Receive Date: 20050121
  Receipt Date: 20040712
  Transmission Date: 20050727
  Serious: No
  Sender: FDA-Public Use
  Company Number: US-BRISTOL-MYERS SQUIBB COMPANY-12644852

PATIENT
  Age: 37 Year
  Sex: Male

DRUGS (16)
  1. SERZONE [Suspect]
     Dates: start: 19970607
  2. CYCLOBENZAPRINE [Concomitant]
  3. ACETAMINOPHEN W/ PROPOXYPHENE HCL [Concomitant]
  4. BUSPAR [Concomitant]
  5. NEURONTIN [Concomitant]
  6. COUMADIN [Concomitant]
  7. NIFEDIPINE [Concomitant]
  8. APAP + OXYCODONE [Concomitant]
  9. TALACEN [Concomitant]
  10. CLOBETASOL [Concomitant]
  11. BIAXIN [Concomitant]
  12. LESCOL [Concomitant]
  13. CEFZIL [Concomitant]
  14. CATAPRES [Concomitant]
  15. BACLOFEN [Concomitant]
  16. PERCOCET [Concomitant]

REACTIONS (12)
  - ALANINE AMINOTRANSFERASE INCREASED [None]
  - ASPARTATE AMINOTRANSFERASE INCREASED [None]
  - BLOOD CHOLESTEROL INCREASED [None]
  - BLOOD CREATININE INCREASED [None]
  - BLOOD GLUCOSE INCREASED [None]
  - BLOOD LACTATE DEHYDROGENASE INCREASED [None]
  - BLOOD TRIGLYCERIDES INCREASED [None]
  - HEPATIC STEATOSIS [None]
  - HIGH DENSITY LIPOPROTEIN DECREASED [None]
  - MEAN CELL VOLUME DECREASED [None]
  - TOTAL CHOLESTEROL/HDL RATIO INCREASED [None]
  - VERY LOW DENSITY LIPOPROTEIN INCREASED [None]
